FAERS Safety Report 4711143-7 (Version None)
Quarter: 2005Q3

REPORT INFORMATION
  Report Type: 
  Country: None (occurrence: None)
  Receive Date: 20050711
  Receipt Date: 20050629
  Transmission Date: 20060218
  Serious: Yes (Hospitalization)
  Sender: FDA-Public Use
  Company Number: JP-NOVOPROD-245266

PATIENT
  Age: 50 Year
  Sex: Male
  Weight: 50 kg

DRUGS (1)
  1. NOVOSEVEN [Suspect]
     Indication: FACTOR VII DEFICIENCY
     Dosage: 4.8 MG, SINGLE
     Dates: start: 20050625, end: 20050625

REACTIONS (2)
  - CEREBRAL THROMBOSIS [None]
  - SUBARACHNOID HAEMORRHAGE [None]
